FAERS Safety Report 9252031 (Version 3)
Quarter: 2013Q2

REPORT INFORMATION
  Report Type: Spontaneous
  Country: DE (occurrence: DE)
  Receive Date: 20130424
  Receipt Date: 20130528
  Transmission Date: 20140414
  Serious: Yes (Life-Threatening, Hospitalization)
  Sender: FDA-Public Use
  Company Number: DE-JNJFOC-20130411137

PATIENT
  Age: 75 Year
  Sex: Male
  Weight: 80 kg

DRUGS (2)
  1. XARELTO [Suspect]
     Indication: PERIPHERAL ARTERIAL OCCLUSIVE DISEASE
     Route: 048
     Dates: start: 20130205, end: 20130211
  2. KLACID (CLARITHROMYCIN) [Suspect]
     Indication: PNEUMONIA
     Route: 065
     Dates: start: 20130210

REACTIONS (3)
  - Acute hepatic failure [Unknown]
  - Coma hepatic [Unknown]
  - Off label use [Unknown]
